FAERS Safety Report 25838988 (Version 2)
Quarter: 2025Q4

REPORT INFORMATION
  Report Type: Spontaneous
  Country: US (occurrence: US)
  Receive Date: 20250924
  Receipt Date: 20251010
  Transmission Date: 20260117
  Serious: Yes (Hospitalization)
  Sender: TEVA
  Company Number: US-TEVA-VS-3374328

PATIENT
  Age: 40 Year
  Sex: Male

DRUGS (2)
  1. CLOZAPINE [Suspect]
     Active Substance: CLOZAPINE
     Indication: Suicide attempt
     Route: 048
  2. INSULIN GLARGINE [Suspect]
     Active Substance: INSULIN GLARGINE
     Indication: Suicide attempt
     Dosage: INSULIN GLARGINE (VETERINARY DRUG) PRESCRIBED FOR HIS CAT
     Route: 065

REACTIONS (3)
  - Intentional overdose [Unknown]
  - Hypoglycaemia [Recovering/Resolving]
  - Hypokalaemia [Unknown]
